FAERS Safety Report 15520238 (Version 1)
Quarter: 2018Q4

REPORT INFORMATION
  Report Type: Spontaneous
  Country: US (occurrence: US)
  Receive Date: 20181017
  Receipt Date: 20181017
  Transmission Date: 20190205
  Serious: No
  Sender: FDA-Public Use
  Company Number: US-NOVOPROD-610036

PATIENT
  Sex: Female

DRUGS (1)
  1. TRESIBA FLEXTOUCH U200 [Suspect]
     Active Substance: INSULIN DEGLUDEC
     Indication: LATENT AUTOIMMUNE DIABETES IN ADULTS
     Dosage: 18 U, QD
     Route: 058
     Dates: start: 201806

REACTIONS (1)
  - Diabetes mellitus inadequate control [Not Recovered/Not Resolved]

NARRATIVE: CASE EVENT DATE: 201806
